FAERS Safety Report 5150523-5 (Version None)
Quarter: 2006Q4

REPORT INFORMATION
  Report Type: 
  Country: None (occurrence: None)
  Receive Date: 20061114
  Receipt Date: 20061107
  Transmission Date: 20070319
  Serious: Yes (Death, Hospitalization)
  Sender: FDA-Public Use
  Company Number: PHRM2006FR03006

PATIENT
  Age: 98 Year
  Sex: Female

DRUGS (11)
  1. MIOREL [Concomitant]
     Indication: BACK PAIN
     Dosage: 4 MG, TID
     Route: 048
     Dates: start: 20061009, end: 20061017
  2. DOLIPRANE [Concomitant]
     Indication: BACK PAIN
     Dates: start: 20061009, end: 20061017
  3. VOLTAREN [Suspect]
     Indication: BACK PAIN
     Dosage: 75 MG, QD
     Route: 030
     Dates: start: 20061009, end: 20061012
  4. PLAVIX [Interacting]
     Indication: ANGINA PECTORIS
     Dosage: 75 MG, QD
     Route: 048
     Dates: end: 20061017
  5. DISCOTRINE [Concomitant]
     Indication: ANGINA PECTORIS
     Route: 062
  6. VASTAREL ^SERVIER^ [Concomitant]
     Indication: ANGINA PECTORIS
     Route: 048
  7. NOVONORM [Concomitant]
     Indication: DIABETES MELLITUS NON-INSULIN-DEPENDENT
     Route: 048
  8. NEBIVOLOL HYDROCHLORIDE [Concomitant]
     Indication: HYPERTENSION
     Route: 048
  9. ICAZ [Concomitant]
     Indication: HYPERTENSION
     Route: 048
  10. TAHOR [Concomitant]
     Indication: HYPERLIPIDAEMIA
     Route: 048
  11. ARTHROTEC [Suspect]
     Indication: BACK PAIN
     Dosage: 1 DF, BID
     Route: 048
     Dates: start: 20061013, end: 20061017

REACTIONS (14)
  - ABDOMINAL PAIN [None]
  - ABDOMINAL RIGIDITY [None]
  - ANURIA [None]
  - DIARRHOEA [None]
  - DUODENAL ULCER PERFORATION [None]
  - HYPOTENSION [None]
  - HYPOTHERMIA [None]
  - METABOLIC ACIDOSIS [None]
  - PERITONEAL EFFUSION [None]
  - PERITONITIS [None]
  - PNEUMOPERITONEUM [None]
  - RENAL FAILURE [None]
  - RESUSCITATION [None]
  - SHOCK [None]
